FAERS Safety Report 8980526 (Version 1)
Quarter: 2012Q4

REPORT INFORMATION
  Report Type: Report from Study
  Country: US (occurrence: US)
  Receive Date: 20121221
  Receipt Date: 20121221
  Transmission Date: 20130627
  Serious: Yes (Hospitalization)
  Sender: FDA-Public Use
  Company Number: US-SANOFI-AVENTIS-2012SA092301

PATIENT
  Age: 58 Year
  Sex: Female
  Weight: 93 kg

DRUGS (10)
  1. DOCETAXEL [Suspect]
     Indication: BREAST CANCER
     Route: 042
     Dates: start: 20051116, end: 20051116
  2. CAPECITABINE [Suspect]
     Indication: BREAST CANCER
     Dosage: TTD: 3000mg
     Route: 048
     Dates: start: 20051116, end: 20051126
  3. CAPECITABINE [Suspect]
     Indication: BREAST CANCER
     Route: 048
  4. TRASTUZUMAB [Suspect]
     Indication: BREAST CANCER
     Dosage: 117mg
     Route: 042
     Dates: start: 20050823, end: 20051126
  5. TRASTUZUMAB [Suspect]
     Indication: BREAST CANCER
     Dosage: cumulative dose: 2418mg
     Route: 042
  6. ZOLOFT [Concomitant]
     Route: 048
     Dates: start: 2003
  7. NEXIUM /UNK/ [Concomitant]
     Route: 048
     Dates: start: 20050914
  8. GABAPENTIN [Concomitant]
     Route: 048
     Dates: start: 20051005
  9. LORAZEPAM [Concomitant]
     Route: 048
     Dates: start: 20051005
  10. VAGIFEM [Concomitant]
     Route: 067
     Dates: start: 20051026

REACTIONS (3)
  - Haemorrhoidal haemorrhage [Recovered/Resolved]
  - Epistaxis [Recovered/Resolved]
  - Diarrhoea [Recovered/Resolved]
